FAERS Safety Report 20605466 (Version 1)
Quarter: 2022Q1

REPORT INFORMATION
  Report Type: Report from Study
  Country: AT (occurrence: None)
  Receive Date: 20220317
  Receipt Date: 20220317
  Transmission Date: 20220423
  Serious: Yes (Other)
  Sender: FDA-Public Use
  Company Number: AT-Merck Healthcare KGaA-9305919

PATIENT
  Age: 64 Year
  Sex: Female

DRUGS (1)
  1. REBIF [Suspect]
     Active Substance: INTERFERON BETA-1A
     Indication: Multiple sclerosis
     Route: 058
     Dates: start: 1999

REACTIONS (5)
  - Dental operation [Unknown]
  - Coagulopathy [Recovered/Resolved]
  - Post procedural haemorrhage [Recovered/Resolved]
  - Post procedural complication [Recovered/Resolved]
  - Biopsy bladder [Unknown]
